FAERS Safety Report 6124417-2 (Version None)
Quarter: 2009Q1

REPORT INFORMATION
  Report Type: 
  Country: None (occurrence: None)
  Receive Date: 20090317
  Receipt Date: 20090302
  Transmission Date: 20090719
  Serious: Yes (Other)
  Sender: FDA-Public Use
  Company Number: 2009SP000582

PATIENT
  Age: 68 Year
  Sex: Female
  Weight: 59.9 kg

DRUGS (16)
  1. BROVANA [Suspect]
     Indication: CHRONIC OBSTRUCTIVE PULMONARY DISEASE
     Dosage: 15 UG/2ML; BID; INHALATION; 15 UG/2ML; QD;INHALATION
     Route: 055
     Dates: start: 20080401, end: 20090201
  2. BROVANA [Suspect]
     Indication: CHRONIC OBSTRUCTIVE PULMONARY DISEASE
     Dosage: 15 UG/2ML; BID; INHALATION; 15 UG/2ML; QD;INHALATION
     Route: 055
     Dates: start: 20090201
  3. XOPENEX [Concomitant]
  4. HYDROXYCHLOROQUINE [Concomitant]
  5. COMBIVENT /01261001/ [Concomitant]
  6. SPIRIVA [Concomitant]
  7. SIMVASTATIN [Concomitant]
  8. BONIVA [Concomitant]
  9. PREDNISONE [Concomitant]
  10. AMLODIPINE BESYLATE [Concomitant]
  11. MUCINEX [Concomitant]
  12. SINGULAIR [Concomitant]
  13. TYLENOL (CAPLET) [Concomitant]
  14. CITRACAL [Concomitant]
  15. SALBUTAMOL [Concomitant]
  16. ADVAIR HFA [Concomitant]

REACTIONS (6)
  - CONDITION AGGRAVATED [None]
  - ERUCTATION [None]
  - HEART RATE INCREASED [None]
  - INSOMNIA [None]
  - RESPIRATORY DISORDER [None]
  - SARCOMA OF SKIN [None]
